FAERS Safety Report 10696404 (Version 1)
Quarter: 2015Q1

REPORT INFORMATION
  Report Type: Spontaneous
  Country: US (occurrence: US)
  Receive Date: 20150107
  Receipt Date: 20150107
  Transmission Date: 20150721
  Serious: Yes (Other)
  Sender: FDA-Public Use
  Company Number: US-JNJFOC-20150103016

PATIENT
  Age: 73 Year
  Sex: Male

DRUGS (16)
  1. XARELTO [Suspect]
     Active Substance: RIVAROXABAN
     Indication: PRODUCT USED FOR UNKNOWN INDICATION
     Dates: end: 20141229
  2. PREVACID [Concomitant]
     Active Substance: LANSOPRAZOLE
  3. KEFLEX [Concomitant]
     Active Substance: CEPHALEXIN
  4. VITAMIN B COMPLEX [Concomitant]
     Active Substance: CYANOCOBALAMIN\DEXPANTHENOL\NIACINAMIDE\PYRIDOXINE HYDROCHLORIDE\RIBOFLAVIN 5^-PHOSPHATE SODIUM\THIAMINE HYDROCHLORIDE\VITAMIN B COMPLEX
  5. NAPROXEN. [Concomitant]
     Active Substance: NAPROXEN
  6. NITROGLYCERINE [Concomitant]
     Active Substance: NITROGLYCERIN
  7. ACYCLOVIR. [Concomitant]
     Active Substance: ACYCLOVIR
  8. RAPAFLO [Concomitant]
     Active Substance: SILODOSIN
  9. SELENIUM [Concomitant]
     Active Substance: SELENIUM
  10. TOVIAZ [Concomitant]
     Active Substance: FESOTERODINE FUMARATE
  11. NORCO [Concomitant]
     Active Substance: ACETAMINOPHEN\HYDROCODONE BITARTRATE
  12. BACTROBAN [Concomitant]
     Active Substance: MUPIROCIN\MUPIROCIN CALCIUM
  13. SOMA [Concomitant]
     Active Substance: CARISOPRODOL
  14. IMBRUVICA [Suspect]
     Active Substance: IBRUTINIB
     Indication: CHRONIC LYMPHOCYTIC LEUKAEMIA
     Route: 048
     Dates: start: 20141206, end: 20141229
  15. DIOVAN [Concomitant]
     Active Substance: VALSARTAN
  16. AMIODARONE [Concomitant]
     Active Substance: AMIODARONE

REACTIONS (3)
  - Scab [Not Recovered/Not Resolved]
  - Cerebral haemorrhage [Unknown]
  - Potentiating drug interaction [Unknown]

NARRATIVE: CASE EVENT DATE: 201412
